FAERS Safety Report 4283081-8 (Version None)
Quarter: 2004Q1

REPORT INFORMATION
  Report Type: 
  Country: None (occurrence: None)
  Receive Date: 20040129
  Receipt Date: 20040120
  Transmission Date: 20041129
  Serious: Yes (Death, Other)
  Sender: FDA-Public Use
  Company Number: 2004000801

PATIENT
  Sex: Male

DRUGS (6)
  1. TIKOSYN [Suspect]
     Indication: VENTRICULAR TACHYCARDIA
     Dosage: 1000 MCG (BID),
     Dates: start: 20031013, end: 20031227
  2. ACETYLSALICYLIC ACID SRT [Concomitant]
  3. COMBIVENT [Concomitant]
  4. IPRATROPIUM BROMIDE [Concomitant]
  5. DIGOXIN [Concomitant]
  6. LISINOPRIL [Concomitant]

REACTIONS (1)
  - DEATH [None]
